FAERS Safety Report 13504132 (Version 2)
Quarter: 2017Q2

REPORT INFORMATION
  Report Type: Spontaneous
  Country: FR (occurrence: FR)
  Receive Date: 20170502
  Receipt Date: 20170509
  Transmission Date: 20170830
  Serious: Yes (Hospitalization, Other)
  Sender: FDA-Public Use
  Company Number: PHHY2017FR063498

PATIENT
  Age: 30 Year
  Sex: Female

DRUGS (2)
  1. NEORAL [Suspect]
     Active Substance: CYCLOSPORINE
     Indication: PSORIASIS
     Dosage: 175 MG, BID
     Route: 048
     Dates: start: 20150910, end: 20151008
  2. NEORAL [Suspect]
     Active Substance: CYCLOSPORINE
     Dosage: 50 MG, BID
     Route: 048
     Dates: start: 20151009, end: 20160715

REACTIONS (3)
  - Threatened labour [Recovered/Resolved]
  - Exposure during pregnancy [Unknown]
  - Polyhydramnios [Recovered/Resolved]

NARRATIVE: CASE EVENT DATE: 20160712
